FAERS Safety Report 8491211-7 (Version None)
Quarter: 2012Q3

REPORT INFORMATION
  Report Type: 
  Country: None (occurrence: None)
  Receive Date: 20120706
  Receipt Date: 20120628
  Transmission Date: 20120928
  Serious: Yes (Other)
  Sender: FDA-Public Use
  Company Number: US-SANOFI-AVENTIS-2012SA046709

PATIENT
  Age: 38 Year
  Sex: Female

DRUGS (1)
  1. PLAQUENIL [Suspect]
     Route: 065

REACTIONS (1)
  - LYME DISEASE [None]
